FAERS Safety Report 4492603-3 (Version None)
Quarter: 2004Q4

REPORT INFORMATION
  Report Type: 
  Country: None (occurrence: None)
  Receive Date: 20041029
  Receipt Date: 20041021
  Transmission Date: 20050328
  Serious: Yes (Hospitalization)
  Sender: FDA-Public Use
  Company Number: 2004-07-0360

PATIENT
  Age: 62 Year
  Sex: Female
  Weight: 58 kg

DRUGS (14)
  1. REBETOL [Suspect]
     Indication: HEPATITIS C
     Dosage: 600-400 MG ORAL
     Route: 048
     Dates: start: 20040604, end: 20040617
  2. REBETOL [Suspect]
     Indication: HEPATITIS C
     Dosage: 600-400 MG ORAL
     Route: 048
     Dates: start: 20040618, end: 20040620
  3. INTRON A [Suspect]
     Indication: HEPATITIS C
     Dosage: 6 MIU QD-TIW* INTRAMUSCULAR
     Route: 030
     Dates: start: 20040604, end: 20040617
  4. INTRON A [Suspect]
     Indication: HEPATITIS C
     Dosage: 6 MIU QD-TIW* INTRAMUSCULAR
     Route: 030
     Dates: start: 20040618, end: 20040623
  5. LASIX [Concomitant]
  6. SPIRONOLACTONE [Concomitant]
  7. SELOKEN [Concomitant]
  8. NU-LOTAN (LOSARTAN POTASSIUM) [Concomitant]
  9. WARFARIN SODIUM [Concomitant]
  10. LIPOVAS [Concomitant]
  11. MAGNESIUM OXIDE [Concomitant]
  12. PURSENNID [Concomitant]
  13. LENDORMIN [Concomitant]
  14. VOLTAREN [Concomitant]

REACTIONS (15)
  - ANOREXIA [None]
  - ARTHRALGIA [None]
  - AUTOIMMUNE DISORDER [None]
  - BLOOD CREATINE PHOSPHOKINASE MB INCREASED [None]
  - COMPUTERISED TOMOGRAM ABNORMAL [None]
  - COUGH [None]
  - CYSTITIS [None]
  - DEHYDRATION [None]
  - EATING DISORDER [None]
  - HAEMOGLOBIN DECREASED [None]
  - MALAISE [None]
  - NAUSEA [None]
  - PYREXIA [None]
  - URINE OUTPUT DECREASED [None]
  - VOMITING [None]
